FAERS Safety Report 24544421 (Version 1)
Quarter: 2024Q4

REPORT INFORMATION
  Report Type: Spontaneous
  Country: US (occurrence: None)
  Receive Date: 20241023
  Receipt Date: 20241023
  Transmission Date: 20250114
  Serious: Yes (Death)
  Sender: Public
  Company Number: None

PATIENT
  Age: 88 Year
  Sex: Female

DRUGS (1)
  1. PROLIA [Suspect]
     Active Substance: DENOSUMAB
     Indication: Osteoporosis
     Route: 058
     Dates: start: 20230511, end: 20240429

REACTIONS (1)
  - Death [None]

NARRATIVE: CASE EVENT DATE: 20241023
